FAERS Safety Report 7674198-6 (Version None)
Quarter: 2011Q3

REPORT INFORMATION
  Report Type: 
  Country: None (occurrence: None)
  Receive Date: 20110810
  Receipt Date: 20110805
  Transmission Date: 20111222
  Serious: Yes (Other)
  Sender: FDA-Public Use
  Company Number: JP-BRACCO-004917

PATIENT
  Sex: Female
  Weight: 56 kg

DRUGS (3)
  1. IOPAMIDOL [Suspect]
     Indication: LARGE INTESTINE CARCINOMA
     Route: 042
     Dates: start: 20110608, end: 20110608
  2. IOPAMIDOL [Suspect]
     Indication: COMPUTERISED TOMOGRAM
     Route: 042
     Dates: start: 20110608, end: 20110608
  3. IOPAMIDOL [Suspect]
     Indication: INTESTINAL OPERATION
     Route: 042
     Dates: start: 20110608, end: 20110608

REACTIONS (3)
  - BLOOD PRESSURE DECREASED [None]
  - LOSS OF CONSCIOUSNESS [None]
  - COLD SWEAT [None]
